FAERS Safety Report 6160003-6 (Version None)
Quarter: 2009Q2

REPORT INFORMATION
  Report Type: 
  Country: None (occurrence: None)
  Receive Date: 20090420
  Receipt Date: 20090407
  Transmission Date: 20091009
  Serious: No
  Sender: FDA-Public Use
  Company Number: US-BAYER-200917754NA

PATIENT
  Age: 69 Year
  Sex: Male

DRUGS (2)
  1. LEVITRA [Suspect]
     Indication: DRUG USE FOR UNKNOWN INDICATION
     Dosage: TOTAL DAILY DOSE: 20 MG  UNIT DOSE: 20 MG
     Route: 048
     Dates: start: 20090201, end: 20090301
  2. KLONOPIN [Concomitant]
     Dates: start: 19950101

REACTIONS (2)
  - MIDDLE EAR EFFUSION [None]
  - TINNITUS [None]
